FAERS Safety Report 6713657-7 (Version None)
Quarter: 2010Q2

REPORT INFORMATION
  Report Type: 
  Country: None (occurrence: None)
  Receive Date: 20100506
  Receipt Date: 20100503
  Transmission Date: 20101027
  Serious: Yes (Hospitalization)
  Sender: FDA-Public Use
  Company Number: B0650956A

PATIENT
  Sex: Female

DRUGS (3)
  1. PAXIL [Suspect]
     Indication: DRUG USE FOR UNKNOWN INDICATION
     Route: 048
  2. NORGESTREL + ETHINYLESTRADIOL [Suspect]
     Indication: MENOMETRORRHAGIA
     Dosage: 1TAB PER DAY
     Route: 048
  3. UNSPECIFIED DRUGS [Concomitant]

REACTIONS (3)
  - DRUG INTERACTION [None]
  - HEPATITIS ACUTE [None]
  - MALAISE [None]
